FAERS Safety Report 11273819 (Version 2)
Quarter: 2015Q3

REPORT INFORMATION
  Report Type: Report from Study
  Country: AU (occurrence: AU)
  Receive Date: 20150715
  Receipt Date: 20150804
  Transmission Date: 20151125
  Serious: Yes (Death, Other)
  Sender: FDA-Public Use
  Company Number: PHHY2015AU084568

PATIENT
  Age: 62 Year
  Sex: Male
  Weight: 85 kg

DRUGS (6)
  1. METOPROLOL [Concomitant]
     Active Substance: METOPROLOL
     Indication: PRODUCT USED FOR UNKNOWN INDICATION
     Route: 065
  2. ASPIRIN. [Concomitant]
     Active Substance: ASPIRIN
     Indication: PRODUCT USED FOR UNKNOWN INDICATION
     Route: 065
  3. VALPROATE [Concomitant]
     Active Substance: VALPROATE SODIUM
     Indication: PRODUCT USED FOR UNKNOWN INDICATION
     Route: 065
  4. CLOZARIL [Suspect]
     Active Substance: CLOZAPINE
     Indication: SCHIZOAFFECTIVE DISORDER
     Dosage: 600 MG, QHS
     Route: 048
     Dates: start: 20150424
  5. ATORVASTATIN [Concomitant]
     Active Substance: ATORVASTATIN
     Indication: PRODUCT USED FOR UNKNOWN INDICATION
     Route: 065
  6. ARIPIPRAZOLE. [Concomitant]
     Active Substance: ARIPIPRAZOLE
     Indication: PRODUCT USED FOR UNKNOWN INDICATION
     Dosage: 300 MG, MONTHLY
     Route: 065

REACTIONS (22)
  - Systolic dysfunction [Unknown]
  - Blood creatinine increased [Not Recovered/Not Resolved]
  - Neutrophilia [Unknown]
  - Aortic valve incompetence [Unknown]
  - Protein total decreased [Unknown]
  - Neutrophil count increased [Recovered/Resolved]
  - Diastolic dysfunction [Unknown]
  - Ventricular hypertrophy [Unknown]
  - Blood phosphorus decreased [Recovered/Resolved]
  - Glomerular filtration rate decreased [Recovering/Resolving]
  - Blood glucose increased [Recovered/Resolved]
  - Ventricular hypokinesia [Unknown]
  - Blood sodium decreased [Unknown]
  - White blood cell count increased [Recovered/Resolved]
  - Atrial fibrillation [Recovered/Resolved]
  - Pulmonary embolism [Unknown]
  - Blood albumin decreased [Not Recovered/Not Resolved]
  - Aortic dilatation [Unknown]
  - Coronary artery disease [Unknown]
  - White blood cell count increased [Unknown]
  - Myocardial infarction [Fatal]
  - Tricuspid valve incompetence [Unknown]

NARRATIVE: CASE EVENT DATE: 20150428
